FAERS Safety Report 5659517-4 (Version None)
Quarter: 2008Q1

REPORT INFORMATION
  Report Type: 
  Country: None (occurrence: None)
  Receive Date: 20080311
  Receipt Date: 20080306
  Transmission Date: 20080703
  Serious: Yes (Other)
  Sender: FDA-Public Use
  Company Number: PHEH2008US01771

PATIENT
  Age: 81 Year
  Sex: Male

DRUGS (2)
  1. EXELON [Concomitant]
  2. EXELON [Suspect]
     Indication: DEMENTIA
     Dosage: 4.6 MG, QD
     Route: 062
     Dates: start: 20071003, end: 20080122

REACTIONS (3)
  - ABSCESS DRAINAGE [None]
  - APPLICATION SITE ERYTHEMA [None]
  - SUBCUTANEOUS ABSCESS [None]
